FAERS Safety Report 8112279-3 (Version None)
Quarter: 2012Q1

REPORT INFORMATION
  Report Type: 
  Country: None (occurrence: None)
  Receive Date: 20120203
  Receipt Date: 20120203
  Transmission Date: 20120608
  Serious: Yes (Other)
  Sender: FDA-Public Use
  Company Number: None

PATIENT
  Age: 45 Year
  Sex: Female
  Weight: 68.946 kg

DRUGS (1)
  1. FACTIVE [Suspect]
     Indication: SINUSITIS
     Dosage: 320 MG
     Route: 048
     Dates: start: 20120123, end: 20120129

REACTIONS (1)
  - RASH GENERALISED [None]
